FAERS Safety Report 17652476 (Version 1)
Quarter: 2020Q2

REPORT INFORMATION
  Report Type: Spontaneous
  Country: US (occurrence: US)
  Receive Date: 20200409
  Receipt Date: 20200409
  Transmission Date: 20200713
  Serious: Yes (Other)
  Sender: FDA-Public Use
  Company Number: NVSC2020US096039

PATIENT
  Age: 43 Year
  Sex: Male

DRUGS (1)
  1. PHENYLEPHRINE [Suspect]
     Active Substance: PHENYLEPHRINE HYDROCHLORIDE
     Indication: PRIAPISM
     Dosage: 0.5 ML, BID
     Route: 017

REACTIONS (4)
  - Hypertensive emergency [Unknown]
  - Haemorrhage intracranial [Unknown]
  - Priapism [Unknown]
  - Product use in unapproved indication [Unknown]
